FAERS Safety Report 5087422-3 (Version None)
Quarter: 2006Q3

REPORT INFORMATION
  Report Type: 
  Country: None (occurrence: None)
  Receive Date: 20060824
  Receipt Date: 20060807
  Transmission Date: 20061208
  Serious: Yes (Hospitalization)
  Sender: FDA-Public Use
  Company Number: PHBS2006FI11785

PATIENT
  Sex: Male

DRUGS (2)
  1. RITALIN [Suspect]
     Indication: ATTENTION DEFICIT/HYPERACTIVITY DISORDER
     Route: 048
     Dates: start: 20040101, end: 20060724
  2. CONCERTA [Concomitant]

REACTIONS (4)
  - COUGH [None]
  - LUNG INFECTION [None]
  - LUNG INFILTRATION [None]
  - PYREXIA [None]
